FAERS Safety Report 6975323-2 (Version None)
Quarter: 2010Q3

REPORT INFORMATION
  Report Type: 
  Country: None (occurrence: None)
  Receive Date: 20100910
  Receipt Date: 20090527
  Transmission Date: 20110219
  Serious: Yes (Other)
  Sender: FDA-Public Use
  Company Number: US-WYE-H08438509

PATIENT
  Sex: Female
  Weight: 62.65 kg

DRUGS (7)
  1. PRISTIQ [Suspect]
     Indication: ANXIETY
     Route: 048
     Dates: start: 20080601, end: 20080101
  2. PRISTIQ [Suspect]
     Indication: DEPRESSION
     Route: 048
     Dates: start: 20090302, end: 20090101
  3. PRISTIQ [Suspect]
     Route: 048
     Dates: start: 20090101, end: 20090101
  4. PRISTIQ [Suspect]
     Route: 048
     Dates: start: 20090101, end: 20090101
  5. PRISTIQ [Suspect]
     Route: 048
     Dates: start: 20090101, end: 20090430
  6. PRISTIQ [Suspect]
     Dosage: UNKNOWN
     Route: 048
     Dates: start: 20090101
  7. LIPITOR [Concomitant]
     Dosage: 10 MG (FREQUENCY UNSPECIFIED)

REACTIONS (4)
  - ABDOMINAL DISCOMFORT [None]
  - BLOOD PRESSURE INCREASED [None]
  - DRUG WITHDRAWAL SYNDROME [None]
  - HEADACHE [None]
